FAERS Safety Report 16676855 (Version 1)
Quarter: 2019Q3

REPORT INFORMATION
  Report Type: Spontaneous
  Country: US (occurrence: US)
  Receive Date: 20190807
  Receipt Date: 20190807
  Transmission Date: 20191004
  Serious: Yes (Hospitalization, Other)
  Sender: FDA-Public Use
  Company Number: US-HETERO-HET2019US01073

PATIENT
  Age: 54 Year
  Sex: Female

DRUGS (3)
  1. VALACYCLOVIR [Suspect]
     Active Substance: VALACYCLOVIR HYDROCHLORIDE
     Indication: VARICELLA ZOSTER VIRUS INFECTION
     Dosage: UNK
     Route: 048
  2. ACYCLOVIR. [Suspect]
     Active Substance: ACYCLOVIR
     Indication: VARICELLA ZOSTER VIRUS INFECTION
     Dosage: 15 MG/KG, EVERY 8 H
     Route: 042
  3. VALGANCICLOVIR. [Suspect]
     Active Substance: VALGANCICLOVIR
     Indication: VARICELLA ZOSTER VIRUS INFECTION
     Dosage: 900 MG, B.I.D.
     Route: 065

REACTIONS (2)
  - Necrotising retinitis [Recovering/Resolving]
  - Retinal detachment [Unknown]
